FAERS Safety Report 4986151-1 (Version None)
Quarter: 2006Q2

REPORT INFORMATION
  Report Type: 
  Country: None (occurrence: None)
  Receive Date: 20060428
  Receipt Date: 20060424
  Transmission Date: 20061013
  Serious: Yes (Hospitalization)
  Sender: FDA-Public Use
  Company Number: US-MERCK-0604USA03723

PATIENT
  Age: 65 Year
  Sex: Female
  Weight: 89 kg

DRUGS (3)
  1. VIOXX [Suspect]
     Indication: ARTHRITIS
     Route: 048
     Dates: start: 19990701, end: 20030401
  2. SYNTHROID [Concomitant]
     Route: 048
  3. PRAVACHOL [Concomitant]
     Route: 048

REACTIONS (2)
  - CORONARY ARTERY SURGERY [None]
  - MYOCARDIAL INFARCTION [None]
